FAERS Safety Report 4633960-4 (Version None)
Quarter: 2005Q2

REPORT INFORMATION
  Report Type: 
  Country: None (occurrence: None)
  Receive Date: 20050412
  Receipt Date: 20050412
  Transmission Date: 20051028
  Serious: Yes (Hospitalization)
  Sender: FDA-Public Use
  Company Number: None

PATIENT
  Sex: Male
  Weight: 62.5964 kg

DRUGS (8)
  1. IRINOTECAN HCL [Suspect]
     Indication: OESOPHAGEAL CARCINOMA
     Dosage: 240 MG IV
     Route: 042
  2. MMC [Concomitant]
  3. IMODIUM [Concomitant]
  4. COMPAZINE [Concomitant]
  5. PARAGORIC [Concomitant]
  6. ROXICET [Concomitant]
  7. OXYCODONE [Concomitant]
  8. CLARITIN-D [Concomitant]

REACTIONS (4)
  - DEHYDRATION [None]
  - DIARRHOEA [None]
  - HYPONATRAEMIA [None]
  - RENAL FAILURE ACUTE [None]
